FAERS Safety Report 25746050 (Version 1)
Quarter: 2025Q3

REPORT INFORMATION
  Report Type: Report from Study
  Country: US (occurrence: US)
  Receive Date: 20250901
  Receipt Date: 20250901
  Transmission Date: 20251021
  Serious: No
  Sender: SUNOVION
  Company Number: US-SUMITOMO PHARMA SWITZERLAND GMBH-2025SPA009757

PATIENT
  Age: 56 Year
  Sex: Male

DRUGS (10)
  1. ORGOVYX [Suspect]
     Active Substance: RELUGOLIX
     Indication: Prostate cancer
     Dosage: 1 DF, QD
     Route: 048
     Dates: start: 20250728
  2. ALBUTEROL [Concomitant]
     Active Substance: ALBUTEROL
  3. FLONASE [Concomitant]
     Active Substance: FLUTICASONE PROPIONATE
  4. VITAMINS [Concomitant]
     Active Substance: VITAMINS
  5. NUBEQA [Concomitant]
     Active Substance: DAROLUTAMIDE
  6. PROLIA [Concomitant]
     Active Substance: DENOSUMAB
  7. SYMBICORT [Concomitant]
     Active Substance: BUDESONIDE\FORMOTEROL FUMARATE DIHYDRATE
  8. SINGULAIR [Concomitant]
     Active Substance: MONTELUKAST SODIUM
  9. VITAMIN D [Concomitant]
     Active Substance: VITAMIN D NOS
  10. ZYRTEC [Concomitant]
     Active Substance: CETIRIZINE HYDROCHLORIDE

REACTIONS (2)
  - Hot flush [Unknown]
  - Incorrect dose administered [Unknown]
